FAERS Safety Report 4826491-X (Version None)
Quarter: 2005Q4

REPORT INFORMATION
  Report Type: 
  Country: None (occurrence: None)
  Receive Date: 20051111
  Receipt Date: 20050718
  Transmission Date: 20060501
  Serious: Yes (Hospitalization)
  Sender: FDA-Public Use
  Company Number: US-MERCK-0507USA02363

PATIENT
  Age: 42 Year
  Sex: Male
  Weight: 78 kg

DRUGS (10)
  1. VIOXX [Suspect]
     Indication: MIGRAINE
     Route: 048
     Dates: start: 20020501, end: 20031001
  2. TYLENOL (CAPLET) [Concomitant]
     Route: 065
     Dates: start: 19950101
  3. AXERT [Concomitant]
     Indication: HEADACHE
     Route: 065
  4. TENORMIN [Concomitant]
     Indication: HYPERTENSION
     Route: 065
     Dates: start: 19980501, end: 20031001
  5. ALLEGRA [Concomitant]
     Indication: SEASONAL ALLERGY
     Route: 065
  6. FOLIC ACID [Concomitant]
     Route: 065
  7. TEMAZEPAM [Concomitant]
     Route: 065
     Dates: start: 20000201
  8. SPIRONOLACTONE [Concomitant]
     Indication: HYPERTENSION
     Route: 065
     Dates: start: 19990701, end: 20031001
  9. RANITIDINE [Concomitant]
     Indication: STOMACH DISCOMFORT
     Route: 065
  10. IMIPRAMINE HYDROCHLORIDE [Concomitant]
     Indication: NEUROPATHY
     Route: 065
     Dates: start: 20000801

REACTIONS (7)
  - BLOOD CHOLESTEROL INCREASED [None]
  - BLOOD TRIGLYCERIDES INCREASED [None]
  - CAROTID ARTERY STENOSIS [None]
  - CEREBROVASCULAR ACCIDENT [None]
  - HAND FRACTURE [None]
  - LACERATION [None]
  - MIGRAINE [None]
